FAERS Safety Report 11494288 (Version 2)
Quarter: 2015Q3

REPORT INFORMATION
  Report Type: Spontaneous
  Country: US (occurrence: US)
  Receive Date: 20150911
  Receipt Date: 20150914
  Transmission Date: 20151125
  Serious: No
  Sender: FDA-Public Use
  Company Number: US-ASTRAZENECA-2015SE84470

PATIENT
  Age: 37 Year
  Sex: Male

DRUGS (3)
  1. LATUDA [Suspect]
     Active Substance: LURASIDONE HYDROCHLORIDE
     Indication: SCHIZOPHRENIA
     Dosage: NON AZ PRODUCT
     Route: 065
  2. SEROQUEL XR [Suspect]
     Active Substance: QUETIAPINE FUMARATE
     Indication: SCHIZOPHRENIA
     Route: 048
  3. CLOZAPINE. [Concomitant]
     Active Substance: CLOZAPINE

REACTIONS (3)
  - Treatment noncompliance [Unknown]
  - Hallucination, auditory [Unknown]
  - Vomiting [Unknown]
